FAERS Safety Report 8854576 (Version 1)
Quarter: 2012Q4

REPORT INFORMATION
  Report Type: 
  Country: US (occurrence: US)
  Receive Date: 20121023
  Receipt Date: 20121023
  Transmission Date: 20130627
  Serious: Yes (Other)
  Sender: FDA-Public Use
  Company Number: US-DX529-2012DX000227

PATIENT
  Age: 13 Year
  Sex: Female
  Weight: 53.52 kg

DRUGS (3)
  1. KALBITOR [Suspect]
     Indication: HEREDITARY ANGIOEDEMA
     Route: 058
     Dates: start: 20121010, end: 20121010
  2. KALBITOR [Suspect]
     Indication: HEREDITARY ANGIOEDEMA
     Route: 058
     Dates: start: 20120131
  3. BENADRYL /00000402/ [Concomitant]
     Indication: PREMEDICATION
     Route: 048

REACTIONS (2)
  - Anaphylactic reaction [Recovering/Resolving]
  - Off label use [Recovered/Resolved]
